FAERS Safety Report 9189515 (Version 1)
Quarter: 2013Q1

REPORT INFORMATION
  Report Type: Spontaneous
  Country: JP (occurrence: JP)
  Receive Date: 20130326
  Receipt Date: 20130326
  Transmission Date: 20140127
  Serious: Yes (Hospitalization)
  Sender: FDA-Public Use
  Company Number: JP-ELI_LILLY_AND_COMPANY-JP201303003602

PATIENT
  Age: 85 Year
  Sex: Female

DRUGS (2)
  1. HUMALOG LISPRO [Suspect]
     Indication: DIABETES MELLITUS
     Dosage: 4 U, QD
     Route: 058
     Dates: end: 20130308
  2. LANTUS [Concomitant]
     Indication: DIABETES MELLITUS
     Dosage: 12 U, QD
     Route: 058
     Dates: end: 20130308

REACTIONS (3)
  - Enterocolitis [Unknown]
  - Blood pressure decreased [Recovered/Resolved]
  - Hypoglycaemia [Recovered/Resolved]
